FAERS Safety Report 25002684 (Version 1)
Quarter: 2025Q1

REPORT INFORMATION
  Report Type: Spontaneous
  Country: US (occurrence: US)
  Receive Date: 20250224
  Receipt Date: 20250224
  Transmission Date: 20250408
  Serious: No
  Sender: ABBVIE
  Company Number: US-ABBVIE-6145231

PATIENT
  Age: 61 Year
  Sex: Male

DRUGS (2)
  1. VRAYLAR [Suspect]
     Active Substance: CARIPRAZINE
     Indication: Product used for unknown indication
  2. AUSTEDO [Concomitant]
     Active Substance: DEUTETRABENAZINE
     Indication: Product used for unknown indication

REACTIONS (6)
  - Tardive dyskinesia [Unknown]
  - Weight decreased [Unknown]
  - Feeding disorder [Unknown]
  - Hypersomnia [Unknown]
  - Tremor [Unknown]
  - Tongue thrust [Unknown]
